FAERS Safety Report 4986042-6 (Version None)
Quarter: 2006Q2

REPORT INFORMATION
  Report Type: 
  Country: None (occurrence: None)
  Receive Date: 20060428
  Receipt Date: 20060224
  Transmission Date: 20061013
  Serious: Yes (Hospitalization)
  Sender: FDA-Public Use
  Company Number: US-AMGEN-STX170189

PATIENT
  Sex: Male

DRUGS (9)
  1. ENBREL [Suspect]
     Indication: PSORIATIC ARTHROPATHY
     Route: 058
     Dates: start: 20060125, end: 20060125
  2. SULFASALAZINE [Suspect]
     Indication: PSORIATIC ARTHROPATHY
     Route: 048
     Dates: start: 20051228
  3. TRAZODONE HCL [Concomitant]
     Route: 048
  4. ACIPHEX [Concomitant]
     Route: 048
     Dates: start: 20050701
  5. VICODIN [Concomitant]
     Route: 048
  6. XANAX [Concomitant]
     Route: 048
  7. LISINOPRIL [Concomitant]
     Route: 048
  8. TRICOR [Concomitant]
     Route: 048
  9. LIPITOR [Concomitant]
     Route: 048
     Dates: start: 20040901

REACTIONS (5)
  - ALCOHOL USE [None]
  - DRUG SCREEN POSITIVE [None]
  - HEPATIC STEATOSIS [None]
  - LIVER FUNCTION TEST ABNORMAL [None]
  - PANCREATITIS [None]
